FAERS Safety Report 7509638-6 (Version None)
Quarter: 2011Q2

REPORT INFORMATION
  Report Type: 
  Country: None (occurrence: None)
  Receive Date: 20110527
  Receipt Date: 20110519
  Transmission Date: 20111010
  Serious: Yes (Death, Other)
  Sender: FDA-Public Use
  Company Number: GB-BRISTOL-MYERS SQUIBB COMPANY-15759632

PATIENT
  Sex: Female

DRUGS (2)
  1. DECADRON [Suspect]
     Indication: MULTIPLE MYELOMA
  2. SPRYCEL [Suspect]
     Indication: MULTIPLE MYELOMA

REACTIONS (2)
  - HAEMORRHAGE [None]
  - DEATH [None]
